FAERS Safety Report 5456373-4 (Version None)
Quarter: 2007Q3

REPORT INFORMATION
  Report Type: 
  Country: None (occurrence: None)
  Receive Date: 20070918
  Receipt Date: 20061228
  Transmission Date: 20080115
  Serious: No
  Sender: FDA-Public Use
  Company Number: US-ASTRAZENECA-2006UW24765

PATIENT
  Age: 82 Year
  Sex: Male
  Weight: 62.7 kg

DRUGS (7)
  1. SEROQUEL [Suspect]
     Route: 048
     Dates: start: 20060927, end: 20061113
  2. SEROQUEL [Suspect]
     Route: 048
     Dates: start: 20061113, end: 20061114
  3. SEROQUEL [Suspect]
     Route: 048
     Dates: start: 20061114
  4. EFFEXOR [Concomitant]
  5. VITAMIN TAB [Concomitant]
  6. CARBIDOPA [Concomitant]
  7. LEVODOPA [Concomitant]

REACTIONS (1)
  - VISION BLURRED [None]
